FAERS Safety Report 11056119 (Version 2)
Quarter: 2015Q2

REPORT INFORMATION
  Report Type: Spontaneous
  Country: US (occurrence: US)
  Receive Date: 20150422
  Receipt Date: 20150519
  Transmission Date: 20150821
  Serious: Yes (Death, Hospitalization, Disabling, Other)
  Sender: FDA-Public Use
  Company Number: US-MERCK-1504USA020575

PATIENT
  Sex: Male
  Weight: 104.5 kg

DRUGS (2)
  1. JANUVIA [Suspect]
     Active Substance: SITAGLIPTIN PHOSPHATE
     Indication: TYPE 2 DIABETES MELLITUS
     Dosage: 100 MG, QD
     Route: 048
     Dates: start: 20110922, end: 20120626
  2. JANUVIA [Suspect]
     Active Substance: SITAGLIPTIN PHOSPHATE
     Dosage: 50 MG QD
     Route: 048
     Dates: start: 20121221

REACTIONS (25)
  - Explorative laparotomy [Unknown]
  - Intestinal adhesion lysis [Unknown]
  - Bile duct stent insertion [Unknown]
  - Hypoglycaemia [Unknown]
  - Coronary artery disease [Unknown]
  - Obstruction gastric [Unknown]
  - Cholecystectomy [Unknown]
  - Metastases to liver [Unknown]
  - Small intestine carcinoma [Unknown]
  - Hepatic steatosis [Unknown]
  - Nausea [Unknown]
  - Gastroenterostomy [Unknown]
  - Renal cyst [Unknown]
  - Oesophageal dilatation [Unknown]
  - Abdominal pain [Unknown]
  - Pancreatitis [Unknown]
  - Cholelithiasis [Unknown]
  - Cardiac murmur [Unknown]
  - Oesophageal stenosis [Unknown]
  - Adenocarcinoma pancreas [Unknown]
  - Death [Fatal]
  - Bile duct stent insertion [Unknown]
  - Cholecystitis [Unknown]
  - Depression [Unknown]
  - Deformity [Unknown]

NARRATIVE: CASE EVENT DATE: 2012
